FAERS Safety Report 8483852-8 (Version None)
Quarter: 2012Q3

REPORT INFORMATION
  Report Type: 
  Country: None (occurrence: None)
  Receive Date: 20120703
  Receipt Date: 20120626
  Transmission Date: 20120928
  Serious: Yes (Other)
  Sender: FDA-Public Use
  Company Number: US-AMGEN-USASP2012039482

PATIENT
  Age: 45 Year
  Sex: Male

DRUGS (1)
  1. ENBREL [Suspect]
     Indication: ANKYLOSING SPONDYLITIS
     Dosage: 50 MG, UNK
     Route: 058
     Dates: start: 20120330, end: 20120625

REACTIONS (6)
  - AMNESIA [None]
  - HEPATITIS C VIRUS TEST POSITIVE [None]
  - NEPHROLITHIASIS [None]
  - AMMONIA INCREASED [None]
  - LETHARGY [None]
  - DECREASED APPETITE [None]
